FAERS Safety Report 22066384 (Version 1)
Quarter: 2023Q1

REPORT INFORMATION
  Report Type: Spontaneous
  Country: GB (occurrence: GB)
  Receive Date: 20230306
  Receipt Date: 20230306
  Transmission Date: 20230418
  Serious: Yes (Other)
  Sender: FDA-Public Use
  Company Number: GB-AstraZeneca-2023A040092

PATIENT

DRUGS (1)
  1. GEFITINIB [Suspect]
     Active Substance: GEFITINIB
     Indication: Metastases to meninges
     Dosage: UNK
     Route: 065
     Dates: start: 201906

REACTIONS (1)
  - Metastases to meninges [Unknown]
